FAERS Safety Report 17644435 (Version 1)
Quarter: 2020Q2

REPORT INFORMATION
  Report Type: Spontaneous
  Country: US (occurrence: US)
  Receive Date: 20200408
  Receipt Date: 20200408
  Transmission Date: 20200713
  Serious: Yes (Other)
  Sender: FDA-Public Use
  Company Number: US-LUPIN PHARMACEUTICALS INC.-2020-01596

PATIENT
  Age: 80 Year
  Sex: Male

DRUGS (3)
  1. ZOLPIDEM [Suspect]
     Active Substance: ZOLPIDEM TARTRATE
     Indication: INSOMNIA
     Dosage: UNK
     Route: 065
  2. ZOLPIDEM [Suspect]
     Active Substance: ZOLPIDEM TARTRATE
     Dosage: UNK (INTERMITTENTLY TAKEN HIGHER DOSES THAN PRESCRIBED)
     Route: 065
  3. GABAPENTIN. [Suspect]
     Active Substance: GABAPENTIN
     Indication: INSOMNIA
     Dosage: UNK (TOOK AN UNKNOWN AMOUNT)
     Route: 065

REACTIONS (5)
  - Memory impairment [Unknown]
  - Fall [Unknown]
  - Drug ineffective [Unknown]
  - Accidental overdose [Unknown]
  - Confusional state [Recovering/Resolving]
